FAERS Safety Report 8531996-4 (Version None)
Quarter: 2012Q3

REPORT INFORMATION
  Report Type: 
  Country: None (occurrence: None)
  Receive Date: 20120723
  Receipt Date: 20120716
  Transmission Date: 20120928
  Serious: Yes (Life-Threatening, Hospitalization, Other)
  Sender: FDA-Public Use
  Company Number: BR-PFIZER INC-2012147039

PATIENT
  Age: 72 Year
  Sex: Female

DRUGS (23)
  1. RISPERIDONE [Concomitant]
     Dosage: UNK
     Dates: end: 20120101
  2. DONAREN RETARD [Concomitant]
     Dosage: UNK
  3. SIMVASTATIN [Concomitant]
  4. LYRICA [Suspect]
     Indication: ARTHRODESIS
     Dosage: 75 MG (ONE CAPSULE), 2X/DAY
     Route: 048
     Dates: start: 20091118, end: 20100202
  5. CLONAZEPAM [Concomitant]
     Dosage: UNK
  6. BUFFERIN [Concomitant]
     Dosage: UNK
  7. WARFARIN SODIUM [Concomitant]
     Dosage: UNK
  8. GABAPENTIN [Concomitant]
     Dosage: 300 MG, 3X/DAY
  9. OMEPRAZOLE [Concomitant]
  10. CLONAZEPAM [Concomitant]
     Dosage: UNK
  11. OSTEONUTRI [Concomitant]
  12. LYRICA [Suspect]
     Indication: SCIATICA
     Dosage: 75 MG (ONE CPAULE), 2X/DAY
     Route: 048
     Dates: start: 20120214, end: 20120301
  13. VYTORIN [Concomitant]
     Dosage: UNK
  14. METOPROLOL SUCCINATE [Concomitant]
     Dosage: UNK
  15. MYTEDON [Concomitant]
     Dosage: UNK
  16. PANTOPRAZOLE [Concomitant]
  17. LYRICA [Suspect]
     Indication: NEURALGIA
  18. LEVOTHYROXINE SODIUM [Concomitant]
     Dosage: UNK
  19. ADDERA D3 [Concomitant]
     Dosage: UNK
  20. NORTRIPTYLINE [Concomitant]
     Dosage: UNK
     Dates: end: 20120101
  21. DIOVAN [Concomitant]
     Dosage: UNK
  22. ROXFLAN [Concomitant]
  23. DALMADORM [Concomitant]
     Dosage: UNK

REACTIONS (9)
  - PAIN [None]
  - BLOOD CREATINE PHOSPHOKINASE INCREASED [None]
  - DYSPHONIA [None]
  - PULMONARY EMBOLISM [None]
  - URINARY TRACT INFECTION [None]
  - RHABDOMYOLYSIS [None]
  - PAIN IN EXTREMITY [None]
  - BALANCE DISORDER [None]
  - MEMORY IMPAIRMENT [None]
